FAERS Safety Report 9012668 (Version 5)
Quarter: 2013Q2

REPORT INFORMATION
  Report Type: Report from Study
  Country: CZ (occurrence: CZ)
  Receive Date: 20130114
  Receipt Date: 20130513
  Transmission Date: 20140414
  Serious: Yes (Hospitalization, Other)
  Sender: FDA-Public Use
  Company Number: CZ-BAXTER-2012BAX023510

PATIENT
  Age: 15 Year
  Sex: Female
  Weight: 47.3 kg

DRUGS (25)
  1. HOLOXAN 500 MG [Suspect]
     Indication: NEOPLASM MALIGNANT
     Route: 041
     Dates: start: 20120929
  2. HOLOXAN 500 MG [Suspect]
     Route: 042
     Dates: start: 20121023
  3. HOLOXAN 500 MG [Suspect]
     Route: 042
     Dates: start: 20121024
  4. HOLOXAN 500 MG [Suspect]
     Route: 042
     Dates: start: 20121114
  5. HOLOXAN 500 MG [Suspect]
     Route: 042
     Dates: start: 20121115, end: 20121127
  6. HOLOXAN 500 MG [Suspect]
     Route: 042
     Dates: start: 20130104
  7. VINCRISTINE [Suspect]
     Indication: NEOPLASM MALIGNANT
     Route: 040
     Dates: start: 20120929
  8. VINCRISTINE [Suspect]
     Route: 042
     Dates: start: 20121006
  9. VINCRISTINE [Suspect]
     Route: 042
     Dates: start: 20121023
  10. VINCRISTINE [Suspect]
     Route: 042
     Dates: start: 20121030
  11. VINCRISTINE [Suspect]
     Route: 040
     Dates: start: 20121114, end: 20121228
  12. VINCRISTINE [Suspect]
     Route: 040
     Dates: start: 20130104
  13. DOXORUBICIN [Suspect]
     Indication: NEOPLASM MALIGNANT
     Route: 041
     Dates: start: 20120929
  14. DOXORUBICIN [Suspect]
     Route: 042
     Dates: start: 20120930
  15. DOXORUBICIN [Suspect]
     Route: 042
     Dates: start: 20121023
  16. DOXORUBICIN [Suspect]
     Route: 042
     Dates: start: 20121024
  17. DOXORUBICIN [Suspect]
     Route: 042
     Dates: start: 20121114
  18. DOXORUBICIN [Suspect]
     Route: 042
     Dates: start: 20121115, end: 20121228
  19. ACTINOMYCIN D [Suspect]
     Indication: NEOPLASM MALIGNANT
     Route: 040
     Dates: start: 20120929
  20. ACTINOMYCIN D [Suspect]
     Route: 042
     Dates: start: 20121023
  21. ACTINOMYCIN D [Suspect]
     Route: 040
     Dates: start: 20121114, end: 20121228
  22. ACTINOMYCIN D [Suspect]
     Route: 040
     Dates: start: 20130104
  23. BEVACIZUMAB [Suspect]
     Indication: NEOPLASM MALIGNANT
     Route: 042
     Dates: start: 20120929
  24. BEVACIZUMAB [Suspect]
     Route: 042
     Dates: start: 20121023
  25. BEVACIZUMAB [Suspect]
     Route: 042
     Dates: start: 20121114, end: 20121127

REACTIONS (7)
  - Febrile neutropenia [Recovered/Resolved]
  - Febrile neutropenia [Recovered/Resolved]
  - Malnutrition [Recovered/Resolved]
  - Pneumothorax traumatic [Recovered/Resolved]
  - Post procedural complication [Recovered/Resolved]
  - Gastrointestinal haemorrhage [Recovered/Resolved]
  - Epistaxis [Recovered/Resolved]
